FAERS Safety Report 16827824 (Version 1)
Quarter: 2019Q3

REPORT INFORMATION
  Report Type: Spontaneous
  Country: US (occurrence: US)
  Receive Date: 20190919
  Receipt Date: 20190919
  Transmission Date: 20191005
  Serious: Yes (Death)
  Sender: FDA-Public Use
  Company Number: US-REGULIS-2074656

PATIENT
  Age: 54 Year
  Sex: Male

DRUGS (4)
  1. N-ACETYLCYSTEINE [Suspect]
     Active Substance: ACETYLCYSTEINE
     Route: 040
  2. HYDROXYZINE [Concomitant]
     Active Substance: HYDROXYZINE HYDROCHLORIDE
     Route: 065
  3. METHYLENE BLUE. [Suspect]
     Active Substance: METHYLENE BLUE
     Indication: METHAEMOGLOBINAEMIA
     Route: 042
  4. METOPROLOL. [Concomitant]
     Active Substance: METOPROLOL
     Route: 065

REACTIONS (3)
  - Coagulopathy [Fatal]
  - Alanine aminotransferase increased [Fatal]
  - Aspartate aminotransferase increased [Fatal]
